FAERS Safety Report 7364763-8 (Version None)
Quarter: 2011Q1

REPORT INFORMATION
  Report Type: 
  Country: None (occurrence: None)
  Receive Date: 20110316
  Receipt Date: 20110316
  Transmission Date: 20110831
  Serious: Yes (Hospitalization, Other)
  Sender: FDA-Public Use
  Company Number: None

PATIENT
  Age: 84 Year
  Sex: Female

DRUGS (1)
  1. ZOLPIDEM TARTRATE [Suspect]
     Indication: INSOMNIA
     Dosage: TAKE 1 TABLET ONCE A DY AT BEDTIME AS NEEDED
     Dates: start: 20101230, end: 20110220

REACTIONS (3)
  - FALL [None]
  - LACERATION [None]
  - DIZZINESS [None]
